FAERS Safety Report 12757913 (Version 1)
Quarter: 2016Q3

REPORT INFORMATION
  Report Type: Spontaneous
  Country: US (occurrence: US)
  Receive Date: 20160916
  Receipt Date: 20160916
  Transmission Date: 20161109
  Serious: Yes (Hospitalization)
  Sender: FDA-Public Use
  Company Number: None

PATIENT
  Age: 63 Year
  Sex: Male
  Weight: 78.56 kg

DRUGS (1)
  1. TEMOZOLOMIDE. [Suspect]
     Active Substance: TEMOZOLOMIDE
     Dates: end: 20160508

REACTIONS (5)
  - Pancytopenia [None]
  - Subdural haematoma [None]
  - Seizure [None]
  - Febrile neutropenia [None]
  - Encephalomalacia [None]

NARRATIVE: CASE EVENT DATE: 20160828
